FAERS Safety Report 9385890 (Version 2)
Quarter: 2013Q3

REPORT INFORMATION
  Report Type: Spontaneous
  Country: JP (occurrence: JP)
  Receive Date: 20130705
  Receipt Date: 20130801
  Transmission Date: 20140515
  Serious: Yes (Hospitalization, Other)
  Sender: FDA-Public Use
  Company Number: PHHY2013JP071201

PATIENT
  Sex: Male

DRUGS (4)
  1. NEORAL [Suspect]
     Indication: INTERSTITIAL LUNG DISEASE
     Dosage: 100 MG, DAILY
     Route: 048
     Dates: start: 201305
  2. NEORAL [Suspect]
     Indication: OFF LABEL USE
  3. PREDNISOLONE [Suspect]
     Indication: INTERSTITIAL LUNG DISEASE
     Dosage: 60 MG, DAILY
     Route: 048
  4. LENDORMIN [Concomitant]
     Dosage: 0.25 MG, UNK
     Route: 048
     Dates: start: 201305

REACTIONS (3)
  - Extremity necrosis [Unknown]
  - Infection [Unknown]
  - Nasopharyngitis [Unknown]
